FAERS Safety Report 12466973 (Version 1)
Quarter: 2016Q2

REPORT INFORMATION
  Report Type: Report from Study
  Country: BR (occurrence: BR)
  Receive Date: 20160615
  Receipt Date: 20160615
  Transmission Date: 20160815
  Serious: Yes (Death, Other)
  Sender: FDA-Public Use
  Company Number: PHHY2016BR081525

PATIENT
  Age: 78 Year
  Sex: Male
  Weight: 54 kg

DRUGS (1)
  1. ACLASTA [Suspect]
     Active Substance: ZOLEDRONIC ACID
     Indication: OSTEOPOROSIS
     Dosage: 5 MG, Q12MO
     Route: 042

REACTIONS (6)
  - Fall [Unknown]
  - Dyspnoea [Fatal]
  - Gait disturbance [Unknown]
  - Emphysema [Fatal]
  - Femur fracture [Unknown]
  - Malaise [Unknown]

NARRATIVE: CASE EVENT DATE: 201309
